FAERS Safety Report 9670391 (Version 2)
Quarter: 2013Q4

REPORT INFORMATION
  Report Type: Report from Study
  Country: US (occurrence: US)
  Receive Date: 20131105
  Receipt Date: 20131107
  Transmission Date: 20140711
  Serious: Yes (Death)
  Sender: FDA-Public Use
  Company Number: US-ROCHE-1300043

PATIENT
  Age: 65 Year
  Sex: Male

DRUGS (3)
  1. AVASTIN [Suspect]
     Indication: PRODUCT USED FOR UNKNOWN INDICATION
     Route: 065
     Dates: end: 20130627
  2. CARBOPLATIN [Concomitant]
  3. ALIMTA [Concomitant]

REACTIONS (1)
  - Disease progression [Fatal]
